FAERS Safety Report 18671013 (Version 3)
Quarter: 2021Q2

REPORT INFORMATION
  Report Type: Spontaneous
  Country: FR (occurrence: FR)
  Receive Date: 20201228
  Receipt Date: 20210525
  Transmission Date: 20210717
  Serious: Yes (Disabling, Other)
  Sender: FDA-Public Use
  Company Number: FR-ALIMERA SCIENCES LIMITED-FR-A16013-20-004608

PATIENT

DRUGS (1)
  1. ILUVIEN [Suspect]
     Active Substance: FLUOCINOLONE ACETONIDE
     Indication: DIABETIC RETINAL OEDEMA
     Dosage: 0.25 MICROGRAM, QD ? UNKNOWN EYE
     Route: 031
     Dates: start: 20200305

REACTIONS (6)
  - Device dislocation [Recovered/Resolved with Sequelae]
  - Eye operation [Recovered/Resolved with Sequelae]
  - Visual impairment [Unknown]
  - Diabetic retinal oedema [Not Recovered/Not Resolved]
  - Corneal oedema [Recovered/Resolved]
  - Disease recurrence [Not Recovered/Not Resolved]

NARRATIVE: CASE EVENT DATE: 20200415
